FAERS Safety Report 20589553 (Version 1)
Quarter: 2022Q1

REPORT INFORMATION
  Report Type: Spontaneous
  Country: US (occurrence: None)
  Receive Date: 20220311
  Receipt Date: 20220311
  Transmission Date: 20220423
  Serious: Yes (Death)
  Sender: FDA-Public Use
  Company Number: None

PATIENT
  Age: 62 Year
  Sex: Male

DRUGS (7)
  1. TACROLIMUS [Suspect]
     Active Substance: TACROLIMUS
     Indication: Prophylaxis against transplant rejection
     Dosage: FREQUENCY : DAILY;?
     Route: 048
     Dates: start: 20130630, end: 20220310
  2. TRULICITY [Suspect]
     Active Substance: DULAGLUTIDE
     Indication: Diabetes mellitus
     Dosage: FREQUENCY : WEEKLY;?
     Route: 058
     Dates: start: 20200908, end: 20220310
  3. LAMOTRIGINE [Concomitant]
     Active Substance: LAMOTRIGINE
     Dates: start: 20210517, end: 20220310
  4. ROSUVASTATIN [Concomitant]
     Active Substance: ROSUVASTATIN
     Dates: start: 20211022, end: 20220310
  5. SIROLIMUS [Concomitant]
     Active Substance: SIROLIMUS
     Dates: start: 20130630, end: 20220310
  6. ASPIRIN [Concomitant]
     Active Substance: ASPIRIN
     Dates: start: 20130630, end: 20220310
  7. LOSARTAN [Concomitant]
     Active Substance: LOSARTAN
     Dates: start: 20200713, end: 20220310

REACTIONS (1)
  - Death [None]

NARRATIVE: CASE EVENT DATE: 20220311
